FAERS Safety Report 18442740 (Version 2)
Quarter: 2021Q1

REPORT INFORMATION
  Report Type: Other
  Country: US (occurrence: US)
  Receive Date: 20201029
  Receipt Date: 20210310
  Transmission Date: 20210419
  Serious: Yes (Hospitalization)
  Sender: FDA-Public Use
  Company Number: US-ROCHE-2705232

PATIENT
  Sex: Female

DRUGS (1)
  1. ESBRIET [Suspect]
     Active Substance: PIRFENIDONE
     Indication: IDIOPATHIC PULMONARY FIBROSIS
     Dosage: 1 TABLET BY MOUTH 3 TIMES A DAY WITH MEALS FOR 7 DAYS,TAKE 2 TABLET(S) BY MOUTH 3 TIMES A DAY WITH M
     Route: 048

REACTIONS (2)
  - Pneumonia [Unknown]
  - Panic attack [Unknown]
